FAERS Safety Report 9919789 (Version 1)
Quarter: 2014Q1

REPORT INFORMATION
  Report Type: Spontaneous
  Country: JP (occurrence: JP)
  Receive Date: 20140224
  Receipt Date: 20140224
  Transmission Date: 20141002
  Serious: Yes (Other)
  Sender: FDA-Public Use
  Company Number: JP-GLAXOSMITHKLINE-B0971163A

PATIENT
  Sex: Male

DRUGS (6)
  1. SERETIDE (50MCG/100MCG) [Suspect]
     Indication: EMPHYSEMA
     Route: 055
  2. SERETIDE (50MCG/100MCG) [Suspect]
     Indication: EMPHYSEMA
     Route: 055
  3. FLUTIDE [Suspect]
     Indication: PRODUCT USED FOR UNKNOWN INDICATION
     Route: 055
  4. SEREVENT [Suspect]
     Indication: PRODUCT USED FOR UNKNOWN INDICATION
     Route: 055
  5. ULTIBRO BREEZHALER [Concomitant]
     Route: 055
  6. SPIRIVA [Concomitant]
     Route: 055

REACTIONS (3)
  - Anuria [Unknown]
  - Anuria [Unknown]
  - Drug effect incomplete [Unknown]
